FAERS Safety Report 7853665-6 (Version None)
Quarter: 2011Q4

REPORT INFORMATION
  Report Type: 
  Country: None (occurrence: None)
  Receive Date: 20111026
  Receipt Date: 20111019
  Transmission Date: 20120403
  Serious: Yes (Death, Other)
  Sender: FDA-Public Use
  Company Number: US-BAXTER-2010BH001154

PATIENT
  Age: 58 Year
  Sex: Female
  Weight: 90 kg

DRUGS (49)
  1. HEPARIN SODIUM INJECTION [Suspect]
     Indication: CATHETERISATION CARDIAC
     Route: 010
     Dates: start: 20071001, end: 20080201
  2. HEPARIN SODIUM INJECTION [Suspect]
     Indication: VASCULAR GRAFT
     Route: 010
     Dates: start: 20071001, end: 20080201
  3. HEPARIN SODIUM INJECTION [Suspect]
     Route: 042
     Dates: start: 20080303, end: 20080303
  4. HEPARIN SODIUM INJECTION [Suspect]
     Route: 042
     Dates: start: 20080303, end: 20080303
  5. HEPARIN SODIUM INJECTION [Suspect]
     Route: 042
     Dates: start: 20080303, end: 20080303
  6. HEPARIN SODIUM INJECTION [Suspect]
     Route: 058
     Dates: start: 20080904, end: 20080909
  7. HEPARIN SODIUM INJECTION [Suspect]
     Route: 065
     Dates: start: 20081001, end: 20081001
  8. HEPARIN SODIUM INJECTION [Suspect]
     Route: 065
     Dates: start: 20081001, end: 20081001
  9. HEPARIN SODIUM INJECTION [Suspect]
     Route: 042
     Dates: start: 20080303, end: 20080303
  10. HEPARIN SODIUM INJECTION [Suspect]
     Route: 042
     Dates: start: 20080303, end: 20080303
  11. ASPIRIN [Concomitant]
     Indication: PRODUCT USED FOR UNKNOWN INDICATION
     Route: 065
  12. HEPARIN SODIUM INJECTION [Suspect]
     Route: 040
     Dates: start: 20080301, end: 20080301
  13. HEPARIN SODIUM INJECTION [Suspect]
     Route: 065
     Dates: start: 20090228, end: 20090228
  14. HEPARIN SODIUM INJECTION [Suspect]
     Route: 065
     Dates: start: 20090228, end: 20090228
  15. HEPARIN SODIUM INJECTION [Suspect]
     Route: 042
     Dates: start: 20080303, end: 20080303
  16. HEPARIN SODIUM INJECTION [Suspect]
     Route: 058
     Dates: start: 20080904, end: 20080909
  17. RENAGEL [Concomitant]
     Indication: PRODUCT USED FOR UNKNOWN INDICATION
     Route: 065
  18. CANDESARTAN CILEXETIL [Concomitant]
     Indication: PRODUCT USED FOR UNKNOWN INDICATION
     Route: 065
  19. HEPARIN SODIUM INJECTION [Suspect]
     Route: 040
     Dates: start: 20080301, end: 20080301
  20. HEPARIN SODIUM INJECTION [Suspect]
     Route: 040
     Dates: start: 20080301, end: 20080301
  21. HEPARIN SODIUM INJECTION [Suspect]
     Route: 042
     Dates: start: 20080303, end: 20080303
  22. HEPARIN SODIUM INJECTION [Suspect]
     Route: 065
     Dates: start: 20081001, end: 20081001
  23. HEPARIN SODIUM INJECTION [Suspect]
     Indication: HAEMODIALYSIS
     Route: 010
     Dates: start: 20071001, end: 20080201
  24. HEPARIN SODIUM INJECTION [Suspect]
     Route: 058
     Dates: start: 20080904, end: 20080909
  25. HEPARIN SODIUM INJECTION [Suspect]
     Route: 065
     Dates: start: 20081001, end: 20081001
  26. HEPARIN [Suspect]
     Indication: PRODUCT USED FOR UNKNOWN INDICATION
     Route: 065
  27. TOPROL-XL [Concomitant]
     Indication: PRODUCT USED FOR UNKNOWN INDICATION
     Route: 065
  28. DAILY MULTIVITAMIN [Concomitant]
     Indication: PRODUCT USED FOR UNKNOWN INDICATION
     Route: 065
  29. DARBEPOETIN ALFA [Concomitant]
     Indication: PRODUCT USED FOR UNKNOWN INDICATION
     Route: 065
  30. HEPARIN SODIUM INJECTION [Suspect]
     Route: 040
     Dates: start: 20080301, end: 20080301
  31. HEPARIN SODIUM INJECTION [Suspect]
     Route: 042
     Dates: start: 20080303, end: 20080303
  32. HEPARIN SODIUM INJECTION [Suspect]
     Route: 058
     Dates: start: 20080904, end: 20080909
  33. HEPARIN SODIUM INJECTION [Suspect]
     Route: 065
     Dates: start: 20090228, end: 20090228
  34. METOPROLOL TARTRATE [Concomitant]
     Indication: PRODUCT USED FOR UNKNOWN INDICATION
     Route: 042
  35. HEPARIN SODIUM INJECTION [Suspect]
     Indication: ACUTE MYOCARDIAL INFARCTION
     Route: 010
     Dates: start: 20071001, end: 20080201
  36. HEPARIN SODIUM INJECTION [Suspect]
     Indication: CORONARY ARTERY BYPASS
     Route: 010
     Dates: start: 20071001, end: 20080201
  37. HEPARIN SODIUM INJECTION [Suspect]
     Route: 040
     Dates: start: 20080301, end: 20080301
  38. HEPARIN SODIUM INJECTION [Suspect]
     Route: 065
     Dates: start: 20090228, end: 20090228
  39. HEPARIN SODIUM INJECTION [Suspect]
     Route: 065
     Dates: start: 20090228, end: 20090228
  40. HEPARIN SODIUM INJECTION [Suspect]
     Route: 042
     Dates: start: 20080303, end: 20080303
  41. HEPARIN SODIUM INJECTION [Suspect]
     Route: 042
     Dates: start: 20080303, end: 20080303
  42. HEPARIN SODIUM INJECTION [Suspect]
     Route: 058
     Dates: start: 20080904, end: 20080909
  43. HEPARIN SODIUM INJECTION [Suspect]
     Route: 065
     Dates: start: 20081001, end: 20081001
  44. HEPARIN SODIUM 1,000 UNITS AND SODIUM CHLORIDE 0.9% [Suspect]
     Indication: PRODUCT USED FOR UNKNOWN INDICATION
     Route: 065
  45. HEPARIN SODIUM 5,000 UNITS IN DEXTROSE 5% [Suspect]
     Indication: ACUTE MYOCARDIAL INFARCTION
     Route: 041
     Dates: start: 20080301, end: 20080305
  46. HEPARIN SODIUM 5,000 UNITS IN DEXTROSE 5% [Suspect]
     Route: 041
     Dates: start: 20090225, end: 20090228
  47. HEPARIN SODIUM 5,000 UNITS IN DEXTROSE 5% [Suspect]
     Route: 041
     Dates: start: 20090302, end: 20090303
  48. LIPITOR [Concomitant]
     Indication: PRODUCT USED FOR UNKNOWN INDICATION
     Route: 065
  49. RENAGEL [Concomitant]
     Route: 065

REACTIONS (20)
  - PULMONARY ALVEOLAR HAEMORRHAGE [None]
  - VOMITING [None]
  - FATIGUE [None]
  - ARTERIOVENOUS GRAFT SITE INFECTION [None]
  - ANEURYSM [None]
  - HEADACHE [None]
  - MUSCLE SPASMS [None]
  - STAPHYLOCOCCAL INFECTION [None]
  - HEPARIN-INDUCED THROMBOCYTOPENIA [None]
  - ACUTE MYOCARDIAL INFARCTION [None]
  - ARTERIOVENOUS FISTULA SITE HAEMORRHAGE [None]
  - CARDIOPULMONARY FAILURE [None]
  - ARTERIAL RUPTURE [None]
  - ERYTHEMA [None]
  - ABDOMINAL PAIN [None]
  - RESPIRATORY DISTRESS [None]
  - ARRHYTHMIA [None]
  - MALAISE [None]
  - BLOOD PRESSURE DECREASED [None]
  - NAUSEA [None]
